FAERS Safety Report 21033189 (Version 1)
Quarter: 2022Q2

REPORT INFORMATION
  Report Type: Spontaneous
  Country: US (occurrence: None)
  Receive Date: 20220630
  Receipt Date: 20220630
  Transmission Date: 20220721
  Serious: No
  Sender: FDA-Public Use
  Company Number: None

PATIENT
  Age: 44 Year
  Sex: Female
  Weight: 108 kg

DRUGS (4)
  1. BEBTELOVIMAB [Suspect]
     Active Substance: BEBTELOVIMAB
     Indication: COVID-19
     Dosage: OTHER FREQUENCY : ONCE;?
     Route: 040
  2. DULOXETINE [Concomitant]
     Active Substance: DULOXETINE
     Dates: start: 20220623
  3. LOSARTAN [Concomitant]
     Active Substance: LOSARTAN
     Dates: start: 20220207
  4. Phenobarbital 97.2 mg [Concomitant]
     Dates: start: 20220602

REACTIONS (5)
  - Infusion related reaction [None]
  - Chest discomfort [None]
  - Nausea [None]
  - Vomiting [None]
  - Throat tightness [None]

NARRATIVE: CASE EVENT DATE: 20220630
